FAERS Safety Report 4557746-4 (Version None)
Quarter: 2005Q1

REPORT INFORMATION
  Report Type: 
  Country: None (occurrence: None)
  Receive Date: 20050103
  Receipt Date: 20040903
  Transmission Date: 20050727
  Serious: Yes (Other)
  Sender: FDA-Public Use
  Company Number: 2004UW16335

PATIENT
  Age: 71 Year
  Sex: Female
  Weight: 123.3784 kg

DRUGS (8)
  1. CRESTOR [Suspect]
     Indication: HYPERLIPIDAEMIA
     Dosage: 10 MG QD PO
     Route: 048
     Dates: start: 20040722, end: 20040802
  2. LEVOXYL [Concomitant]
  3. POTASSIUM CHLORIDE [Concomitant]
  4. LOTENSIN [Concomitant]
  5. RANITIDINE [Concomitant]
  6. PROPRANOLOL [Concomitant]
  7. ASPIRIN [Concomitant]
  8. GLUCOPHAGE [Concomitant]

REACTIONS (4)
  - FEELING ABNORMAL [None]
  - IRRITABILITY [None]
  - MALAISE [None]
  - MYALGIA [None]
